FAERS Safety Report 8003706-0 (Version None)
Quarter: 2011Q4

REPORT INFORMATION
  Report Type: 
  Country: None (occurrence: None)
  Receive Date: 20111222
  Receipt Date: 20111220
  Transmission Date: 20120403
  Serious: Yes (Life-Threatening, Hospitalization, Other)
  Sender: FDA-Public Use
  Company Number: FR-PFIZER INC-2011174441

PATIENT
  Age: 63 Year
  Sex: Female

DRUGS (12)
  1. METFORMIN [Concomitant]
     Dosage: 1000 MG, 3X/DAY
  2. SIMVASTATIN [Concomitant]
     Dosage: 20 MG, 1X/DAY
  3. ALBUTEROL [Concomitant]
     Dosage: UNK, 2X/DAY
  4. AMARYL [Concomitant]
     Dosage: 4 MG, 1X/DAY
  5. SPIRIVA [Concomitant]
     Dosage: UNK, 1X/DAY
  6. EUPRESSYL [Concomitant]
     Dosage: 60 MG, 2X/DAY
  7. XYZAL [Concomitant]
     Dosage: 5 MG, 1X/DAY
  8. CELEBREX [Suspect]
     Dosage: UNK, 1X/DAY
     Route: 048
     Dates: start: 20110414, end: 20110702
  9. VASTAREL [Concomitant]
     Dosage: 35 MG, 2X/DAY
  10. FLUTICASONE PROPIONATE/SALMETEROL [Concomitant]
     Dosage: 2 PUFFS PER DAY
  11. ALLOPURINOL [Concomitant]
     Dosage: 100 MG, 1X/DAY
     Dates: end: 20110702
  12. RABEPRAZOLE SODIUM [Concomitant]
     Dosage: 10 MG, 1X/DAY

REACTIONS (4)
  - RENAL FAILURE ACUTE [None]
  - DYSPNOEA [None]
  - CHILLS [None]
  - PYELONEPHRITIS [None]
